FAERS Safety Report 10019466 (Version 2)
Quarter: 2014Q1

REPORT INFORMATION
  Report Type: Spontaneous
  Country: JP (occurrence: JP)
  Receive Date: 20140318
  Receipt Date: 20140318
  Transmission Date: 20141002
  Serious: Yes (Death, Other)
  Sender: FDA-Public Use
  Company Number: PHHY2014JP030899

PATIENT
  Age: 88 Year
  Sex: Male

DRUGS (1)
  1. CEFTRIAXONE SODIUM SANDOZ [Suspect]
     Dosage: 1 G
     Route: 042
     Dates: start: 201205, end: 201205

REACTIONS (2)
  - Death [Fatal]
  - Pseudomembranous colitis [Unknown]
